FAERS Safety Report 4540958-3 (Version None)
Quarter: 2004Q4

REPORT INFORMATION
  Report Type: 
  Country: None (occurrence: None)
  Receive Date: 20041228
  Receipt Date: 20041223
  Transmission Date: 20050328
  Serious: Yes (Hospitalization)
  Sender: FDA-Public Use
  Company Number: GBR-2004-0001084

PATIENT
  Age: 57 Year
  Sex: Male

DRUGS (4)
  1. OXYCODONE HCL [Suspect]
     Indication: PAIN
  2. ACETAMINOPHEN [Suspect]
     Indication: PAIN
     Dosage: ORAL
     Route: 048
  3. CO-CODAMOL (CODEINE PHOSPHATE, PARACETAMOL) [Suspect]
     Indication: PAIN
  4. DIAMORPHINE (DIAMORPHINE) [Concomitant]

REACTIONS (4)
  - ANGIONEUROTIC OEDEMA [None]
  - BRONCHOSPASM [None]
  - TREATMENT NONCOMPLIANCE [None]
  - URTICARIA [None]
